FAERS Safety Report 15612436 (Version 1)
Quarter: 2018Q4

REPORT INFORMATION
  Report Type: Spontaneous
  Country: DZ (occurrence: DZ)
  Receive Date: 20181113
  Receipt Date: 20181113
  Transmission Date: 20190205
  Serious: Yes (Death, Other)
  Sender: FDA-Public Use
  Company Number: DZ-BIOVITRUM-2018DZ1360

PATIENT
  Sex: Male

DRUGS (3)
  1. ORFADIN [Suspect]
     Active Substance: NITISINONE
  2. ORFADIN [Suspect]
     Active Substance: NITISINONE
  3. ORFADIN [Suspect]
     Active Substance: NITISINONE
     Indication: TYROSINAEMIA

REACTIONS (2)
  - Prothrombin time shortened [Unknown]
  - Hepatic failure [Fatal]
